FAERS Safety Report 25679076 (Version 2)
Quarter: 2025Q3

REPORT INFORMATION
  Report Type: Other
  Country: US (occurrence: US)
  Receive Date: 20250814
  Receipt Date: 20250819
  Transmission Date: 20251020
  Serious: Yes (Death, Other)
  Sender: QILU ANTIBIOTICS PHARMACEUTICAL
  Company Number: US-QILU ANTIBIOTICS PHARMACEUTICAL CO. LTD-QLA-000081-2025

PATIENT
  Age: 71 Year
  Sex: Female
  Weight: 127.5 kg

DRUGS (2)
  1. CEFTRIAXONE [Suspect]
     Active Substance: CEFTRIAXONE
     Indication: Infection prophylaxis
     Route: 042
     Dates: start: 20250531, end: 20250531
  2. CEFTRIAXONE [Suspect]
     Active Substance: CEFTRIAXONE
     Indication: Urinary tract infection

REACTIONS (7)
  - Cardiac arrest [Fatal]
  - Pulseless electrical activity [Fatal]
  - Ventricular fibrillation [Fatal]
  - Unresponsive to stimuli [Fatal]
  - Lethargy [Fatal]
  - Nausea [Fatal]
  - Product quality issue [Recovered/Resolved]

NARRATIVE: CASE EVENT DATE: 20250531
